FAERS Safety Report 25770290 (Version 2)
Quarter: 2025Q3

REPORT INFORMATION
  Report Type: Spontaneous
  Country: EU (occurrence: EU)
  Receive Date: 20250907
  Receipt Date: 20250911
  Transmission Date: 20251020
  Serious: Yes (Life-Threatening)
  Sender: JOHNSON AND JOHNSON
  Company Number: EU-JNJFOC-20250906386

PATIENT
  Age: 68 Year
  Sex: Female

DRUGS (4)
  1. YONDELIS [Suspect]
     Active Substance: TRABECTEDIN
     Indication: Myxoid liposarcoma
     Route: 042
     Dates: start: 20250623
  2. YONDELIS [Suspect]
     Active Substance: TRABECTEDIN
     Route: 042
     Dates: start: 20250716, end: 20250716
  3. DOXORUBICIN [Suspect]
     Active Substance: DOXORUBICIN
     Indication: Myxoid liposarcoma
     Dates: start: 20250623, end: 20250623
  4. DOXORUBICIN [Suspect]
     Active Substance: DOXORUBICIN
     Dates: start: 20250716, end: 20250716

REACTIONS (5)
  - Hepatic cytolysis [Recovered/Resolved]
  - Sepsis [Recovered/Resolved]
  - Lung disorder [Recovered/Resolved]
  - Pancytopenia [Recovered/Resolved]
  - Off label use [Unknown]

NARRATIVE: CASE EVENT DATE: 20250724
